FAERS Safety Report 4426721-2 (Version None)
Quarter: 2004Q3

REPORT INFORMATION
  Report Type: 
  Country: None (occurrence: None)
  Receive Date: 20040816
  Receipt Date: 20040802
  Transmission Date: 20050211
  Serious: Yes (Other)
  Sender: FDA-Public Use
  Company Number: DE-JNJFOC-20040705479

PATIENT
  Age: 9 Year
  Sex: Female

DRUGS (4)
  1. TOPAMAX [Suspect]
     Indication: LENNOX-GASTAUT SYNDROME
     Route: 049
  2. KEPPRA [Suspect]
     Indication: LENNOX-GASTAUT SYNDROME
     Route: 065
  3. PHENOBARBITAL TAB [Suspect]
     Indication: LENNOX-GASTAUT SYNDROME
     Route: 065
  4. DIAZEPAM [Concomitant]
     Route: 065

REACTIONS (9)
  - CHOLESTASIS [None]
  - COAGULOPATHY [None]
  - ENCEPHALOPATHY [None]
  - HEPATIC FAILURE [None]
  - HEPATOTOXICITY [None]
  - HERPES SIMPLEX [None]
  - PULMONARY CONGESTION [None]
  - RESPIRATORY FAILURE [None]
  - SUBILEUS [None]
